FAERS Safety Report 5918656-0 (Version None)
Quarter: 2008Q4

REPORT INFORMATION
  Report Type: 
  Country: None (occurrence: None)
  Receive Date: 20081015
  Receipt Date: 20080422
  Transmission Date: 20090506
  Serious: No
  Sender: FDA-Public Use
  Company Number: US-ASTRAZENECA-2008UW08169

PATIENT
  Age: 58 Year
  Sex: Female
  Weight: 61.2 kg

DRUGS (8)
  1. SYMBICORT [Suspect]
     Indication: CHRONIC OBSTRUCTIVE PULMONARY DISEASE
     Dosage: 160/4.5 2 PUFFS DAILY
     Route: 055
  2. NEXIUM [Concomitant]
     Route: 048
  3. CRESTOR [Concomitant]
     Route: 048
  4. PREMPRO [Concomitant]
  5. AMITRIPTYLINE HCL [Concomitant]
  6. TRIVIAL [Concomitant]
  7. ETRAFON [Concomitant]
  8. LEVBID [Concomitant]

REACTIONS (2)
  - CONSTIPATION [None]
  - DYSPHONIA [None]
